FAERS Safety Report 13489053 (Version 1)
Quarter: 2017Q2

REPORT INFORMATION
  Report Type: Spontaneous
  Country: US (occurrence: US)
  Receive Date: 20170426
  Receipt Date: 20170426
  Transmission Date: 20170830
  Serious: No
  Sender: FDA-Public Use
  Company Number: US-ALKERMES INC.-ALK-2017-000662

PATIENT
  Age: 21 Year
  Sex: Female
  Weight: 45.35 kg

DRUGS (3)
  1. VIVITROL [Suspect]
     Active Substance: NALTREXONE
     Indication: DRUG USE DISORDER
     Dosage: 380 MG, QMO
     Route: 030
     Dates: start: 201608, end: 201608
  2. VIVITROL [Suspect]
     Active Substance: NALTREXONE
     Dosage: 380 MG, QMO
     Route: 030
     Dates: start: 20161222
  3. MIRTAZAPINE. [Concomitant]
     Active Substance: MIRTAZAPINE
     Indication: PRODUCT USED FOR UNKNOWN INDICATION
     Dosage: UNK
     Route: 065

REACTIONS (12)
  - Apathy [Unknown]
  - Tooth infection [Not Recovered/Not Resolved]
  - Somnolence [Unknown]
  - Therapeutic response shortened [Recovered/Resolved]
  - Irritability [Unknown]
  - Disturbance in attention [Not Recovered/Not Resolved]
  - Influenza like illness [Unknown]
  - Toothache [Not Recovered/Not Resolved]
  - Depressed mood [Unknown]
  - Feeling jittery [Not Recovered/Not Resolved]
  - Euphoric mood [Recovered/Resolved]
  - Drug use disorder [Recovered/Resolved]

NARRATIVE: CASE EVENT DATE: 2016
